FAERS Safety Report 9116288 (Version 1)
Quarter: 2013Q1

REPORT INFORMATION
  Report Type: Spontaneous
  Country: NL (occurrence: NL)
  Receive Date: 20130225
  Receipt Date: 20130225
  Transmission Date: 20140127
  Serious: Yes (Hospitalization)
  Sender: FDA-Public Use
  Company Number: NL-AMGEN-NLDSP2013011616

PATIENT
  Age: 51 Year
  Sex: Female

DRUGS (2)
  1. NEULASTA [Suspect]
     Indication: PRODUCT USED FOR UNKNOWN INDICATION
     Dosage: 6 MG, ONE TIME DOSE
     Dates: start: 20130123
  2. CHEMOTHERAPEUTICS [Concomitant]
     Indication: BREAST CANCER METASTATIC
     Dosage: UNK

REACTIONS (3)
  - Headache [Unknown]
  - Pulmonary oedema [Unknown]
  - Muscular weakness [Unknown]
